FAERS Safety Report 11415377 (Version 2)
Quarter: 2016Q4

REPORT INFORMATION
  Report Type: Spontaneous
  Country: IN (occurrence: IN)
  Receive Date: 20150825
  Receipt Date: 20161129
  Transmission Date: 20170206
  Serious: Yes (Other)
  Sender: FDA-Public Use
  Company Number: IN-SUN PHARMACEUTICAL INDUSTRIES LTD-2015R1-101804

PATIENT
  Sex: Female

DRUGS (1)
  1. FORTWIN [Suspect]
     Active Substance: PENTAZOCINE
     Indication: ABDOMINAL PAIN
     Dosage: 60 MG, DAILY (UP TO TWO AMPOULES)
     Route: 030

REACTIONS (3)
  - Joint contracture [Recovering/Resolving]
  - Drug abuse [Recovering/Resolving]
  - Muscle fibrosis [Unknown]
